FAERS Safety Report 8416426-5 (Version None)
Quarter: 2012Q2

REPORT INFORMATION
  Report Type: 
  Country: None (occurrence: None)
  Receive Date: 20120606
  Receipt Date: 20120529
  Transmission Date: 20120825
  Serious: Yes (Other)
  Sender: FDA-Public Use
  Company Number: JP-VERTEX PHARMACEUTICALS INC.-AE-2012-004057

PATIENT
  Age: 59 Year
  Sex: Male

DRUGS (20)
  1. XALATAN [Concomitant]
     Route: 047
  2. PEGINTERFERON ALFA-2A [Concomitant]
     Indication: HEPATITIS C
     Route: 051
     Dates: start: 20120306, end: 20120313
  3. HALOPERIDOL [Concomitant]
     Dates: start: 20120314, end: 20120315
  4. HEPAFLUSH [Concomitant]
     Dates: start: 20120316, end: 20120321
  5. HALOPERIDOL [Concomitant]
     Dates: start: 20120318, end: 20120318
  6. DEPAS [Concomitant]
     Route: 048
  7. ISOTONIC SODIUM CHLORIDE SOLUTION [Concomitant]
     Dates: start: 20120316, end: 20120316
  8. TELAVIC (TELAPREVIR) [Suspect]
     Indication: HEPATITIS C
     Route: 048
     Dates: start: 20120306, end: 20120315
  9. RIBAVIRIN [Concomitant]
     Indication: HEPATITIS C
     Route: 048
     Dates: start: 20120306, end: 20120309
  10. VOLTAREN [Concomitant]
     Route: 048
     Dates: end: 20120314
  11. OLMESARTAN MEDOXOMIL [Concomitant]
     Route: 048
  12. ACETAMINOPHEN [Concomitant]
     Route: 048
     Dates: start: 20120320
  13. CARNACULIN [Concomitant]
     Route: 048
  14. MUCOSTA [Concomitant]
     Route: 048
  15. ISOTONIC SODIUM CHLORIDE SOLUTION [Concomitant]
     Dates: start: 20120314, end: 20120315
  16. HALOPERIDOL [Concomitant]
     Dates: start: 20120316, end: 20120316
  17. RIBAVIRIN [Concomitant]
     Route: 048
     Dates: start: 20120310, end: 20120315
  18. HALCION [Concomitant]
     Route: 048
  19. LOXONIN [Concomitant]
     Route: 061
  20. ISOTONIC SODIUM CHLORIDE SOLUTION [Concomitant]
     Dates: start: 20120318, end: 20120318

REACTIONS (8)
  - RENAL FAILURE ACUTE [None]
  - DRUG WITHDRAWAL HEADACHE [None]
  - TOXICITY TO VARIOUS AGENTS [None]
  - DEHYDRATION [None]
  - PLATELET COUNT DECREASED [None]
  - HAEMOGLOBIN DECREASED [None]
  - SOMNOLENCE [None]
  - RENAL TUBULAR NECROSIS [None]
